FAERS Safety Report 5301695-0 (Version None)
Quarter: 2007Q2

REPORT INFORMATION
  Report Type: 
  Country: None (occurrence: None)
  Receive Date: 20070419
  Receipt Date: 20070327
  Transmission Date: 20071010
  Serious: Yes (Hospitalization)
  Sender: FDA-Public Use
  Company Number: JP-ROCHE-490667

PATIENT
  Age: 65 Year
  Sex: Female

DRUGS (2)
  1. TAMIFLU [Suspect]
     Route: 048
     Dates: start: 20070324, end: 20070324
  2. PL [Concomitant]
     Dosage: DOSE REGIMEN REPORTED AS 1.
     Route: 048

REACTIONS (1)
  - HAEMATOCHEZIA [None]
